FAERS Safety Report 7757212-9 (Version None)
Quarter: 2011Q3

REPORT INFORMATION
  Report Type: 
  Country: None (occurrence: None)
  Receive Date: 20110916
  Receipt Date: 20110912
  Transmission Date: 20111222
  Serious: Yes (Other)
  Sender: FDA-Public Use
  Company Number: US-B.I. PHARMACEUTICALS,INC./RIDGEFIELD-2011-BP-18637BP

PATIENT
  Sex: Female
  Weight: 61.23 kg

DRUGS (15)
  1. SPIRIVA [Suspect]
     Indication: CHRONIC OBSTRUCTIVE PULMONARY DISEASE
     Dosage: 18 MCG
     Route: 055
     Dates: start: 20080101
  2. SYNTHROID [Concomitant]
     Dosage: 0.25 MG
  3. SIMVASTATIN [Concomitant]
     Indication: BLOOD CHOLESTEROL INCREASED
     Dosage: 20 MG
  4. ADVAIR DISKUS 100/50 [Concomitant]
     Indication: CHRONIC OBSTRUCTIVE PULMONARY DISEASE
  5. MULTIVITAMIN [Concomitant]
  6. TRIM/HCTZ [Concomitant]
     Indication: HYPERTENSION
  7. ZOLOFT [Concomitant]
     Dosage: 50 MG
  8. ALLENDRONATE [Concomitant]
     Dosage: 10 MG
  9. GLUCOSAMINE/CHONDROITIN [Concomitant]
  10. ALLOPURINOL [Concomitant]
     Dosage: 100 MG
  11. ZANTAC [Concomitant]
     Dosage: 150 MG
  12. ALBUTEROL [Concomitant]
     Indication: CHRONIC OBSTRUCTIVE PULMONARY DISEASE
  13. PROBIOTIC [Concomitant]
  14. XANAX [Concomitant]
  15. KLOR-CON [Concomitant]
     Dosage: 40 MEQ

REACTIONS (2)
  - DRUG INEFFECTIVE [None]
  - INTERVERTEBRAL DISC PROTRUSION [None]
